FAERS Safety Report 12601112 (Version 2)
Quarter: 2016Q3

REPORT INFORMATION
  Report Type: Spontaneous
  Country: IN (occurrence: IN)
  Receive Date: 20160728
  Receipt Date: 20160818
  Transmission Date: 20161109
  Serious: Yes (Other)
  Sender: FDA-Public Use
  Company Number: IN-ROCHE-1802100

PATIENT
  Sex: Male

DRUGS (1)
  1. AVASTIN [Suspect]
     Active Substance: BEVACIZUMAB
     Indication: PRODUCT USED FOR UNKNOWN INDICATION
     Route: 050
     Dates: start: 20160712

REACTIONS (6)
  - Hypersensitivity [Unknown]
  - Infection [Unknown]
  - Off label use [Unknown]
  - Lacrimation increased [Unknown]
  - Suspected transmission of an infectious agent via product [Unknown]
  - Eye irritation [Unknown]

NARRATIVE: CASE EVENT DATE: 20160712
